FAERS Safety Report 15946557 (Version 2)
Quarter: 2019Q1

REPORT INFORMATION
  Report Type: Spontaneous
  Country: US (occurrence: US)
  Receive Date: 20190211
  Receipt Date: 20190221
  Transmission Date: 20190417
  Serious: Yes (Other)
  Sender: FDA-Public Use
  Company Number: US-ASTRAZENECA-2019SE10084

PATIENT
  Sex: Male
  Weight: 83.1 kg

DRUGS (16)
  1. FUROSEMIDE. [Concomitant]
     Active Substance: FUROSEMIDE
  2. SULFAMETHOXAZOLE [Concomitant]
     Active Substance: SULFAMETHOXAZOLE
  3. FLUCONAZOLE. [Concomitant]
     Active Substance: FLUCONAZOLE
  4. DALIRESP [Concomitant]
     Active Substance: ROFLUMILAST
  5. DILTIAZEM. [Concomitant]
     Active Substance: DILTIAZEM
  6. IBUPROFEN. [Concomitant]
     Active Substance: IBUPROFEN
  7. AMOXICILLIN. [Concomitant]
     Active Substance: AMOXICILLIN
  8. BUPROPION. [Concomitant]
     Active Substance: BUPROPION
  9. AMOXICILLIN. [Concomitant]
     Active Substance: AMOXICILLIN
  10. SIMVASTATIN. [Concomitant]
     Active Substance: SIMVASTATIN
  11. NASONEX [Concomitant]
     Active Substance: MOMETASONE FUROATE
  12. NEXIUM [Suspect]
     Active Substance: ESOMEPRAZOLE MAGNESIUM
     Route: 048
  13. PREDNISONE. [Concomitant]
     Active Substance: PREDNISONE
  14. AMOXICILLIN. [Concomitant]
     Active Substance: AMOXICILLIN
  15. CLOPIDOGREL [Concomitant]
     Active Substance: CLOPIDOGREL BISULFATE
  16. POTASSIUM CHLORIDE. [Concomitant]
     Active Substance: POTASSIUM CHLORIDE

REACTIONS (5)
  - Glomerulonephritis membranous [Unknown]
  - Renal failure [Unknown]
  - Rebound acid hypersecretion [Unknown]
  - Chronic kidney disease [Unknown]
  - Renal injury [Unknown]
